FAERS Safety Report 8275187-3 (Version None)
Quarter: 2012Q2

REPORT INFORMATION
  Report Type: 
  Country: None (occurrence: None)
  Receive Date: 20120411
  Receipt Date: 20120403
  Transmission Date: 20120825
  Serious: Yes (Other)
  Sender: FDA-Public Use
  Company Number: BR-PFIZER INC-2012084814

PATIENT
  Age: 36 Year
  Sex: Female
  Weight: 45 kg

DRUGS (6)
  1. CLONAZEPAM [Concomitant]
     Indication: SLEEP DISORDER
     Dosage: 15 DROPS DAILY
  2. ASCORBIC ACID [Concomitant]
  3. DONAREN [Concomitant]
     Indication: SLEEP DISORDER
     Dosage: UNK
  4. PANTOGAR [Concomitant]
     Indication: ALOPECIA
     Dosage: UNK
  5. PRISTIQ [Suspect]
     Indication: DEPRESSION
     Dosage: 100 MG, 1X/DAY
     Route: 048
     Dates: start: 20111101, end: 20120330
  6. DONAREN [Concomitant]
     Indication: DEPRESSION

REACTIONS (7)
  - SWELLING FACE [None]
  - GENERALISED OEDEMA [None]
  - OEDEMA PERIPHERAL [None]
  - FORMICATION [None]
  - DIZZINESS [None]
  - NERVOUSNESS [None]
  - BRAIN OEDEMA [None]
